FAERS Safety Report 21250338 (Version 1)
Quarter: 2022Q3

REPORT INFORMATION
  Report Type: Spontaneous
  Country: US (occurrence: US)
  Receive Date: 20220824
  Receipt Date: 20220824
  Transmission Date: 20221026
  Serious: No
  Sender: FDA-Public Use
  Company Number: US-009507513-2208USA003063

PATIENT
  Age: 27 Year
  Sex: Female

DRUGS (1)
  1. PRINIVIL [Suspect]
     Active Substance: LISINOPRIL
     Indication: Proteinuria
     Dosage: TITRATED TO 20-30 MG DAILY
     Route: 048

REACTIONS (1)
  - Product use in unapproved indication [Unknown]
